FAERS Safety Report 8262326-3 (Version None)
Quarter: 2012Q2

REPORT INFORMATION
  Report Type: 
  Country: None (occurrence: None)
  Receive Date: 20120402
  Receipt Date: 20120322
  Transmission Date: 20120825
  Serious: Yes (Hospitalization)
  Sender: FDA-Public Use
  Company Number: IT-2011-1781

PATIENT
  Age: 67 Year
  Sex: Female

DRUGS (2)
  1. CARBOPLATIN [Suspect]
     Indication: LUNG ADENOCARCINOMA METASTATIC
     Dosage: 230 MG IV
     Route: 042
     Dates: start: 20100301, end: 20100715
  2. NAVELBINE [Suspect]
     Indication: LUNG ADENOCARCINOMA METASTATIC
     Dosage: 25 MG IV
     Route: 042
     Dates: start: 20100301, end: 20100725

REACTIONS (7)
  - HAEMOGLOBIN DECREASED [None]
  - HAEMATOCRIT DECREASED [None]
  - WHITE BLOOD CELL COUNT DECREASED [None]
  - RED BLOOD CELL COUNT DECREASED [None]
  - MEAN CELL VOLUME INCREASED [None]
  - FEBRILE NEUTROPENIA [None]
  - PNEUMONITIS [None]
